FAERS Safety Report 25849072 (Version 1)
Quarter: 2025Q3

REPORT INFORMATION
  Report Type: Spontaneous
  Country: EU (occurrence: EU)
  Receive Date: 20250925
  Receipt Date: 20250925
  Transmission Date: 20251020
  Serious: Yes (Other)
  Sender: APELLIS PHARMACEUTICALS
  Company Number: EU-BIOVITRUM-2025-FR-010826

PATIENT

DRUGS (1)
  1. PEGCETACOPLAN [Suspect]
     Active Substance: PEGCETACOPLAN
     Indication: C3 glomerulopathy
     Route: 065
     Dates: start: 20250805

REACTIONS (4)
  - Off label use [Unknown]
  - Glomerulosclerosis [Unknown]
  - Treatment noncompliance [Unknown]
  - Vascular hyalinosis [Unknown]
